FAERS Safety Report 9174316 (Version 2)
Quarter: 2013Q2

REPORT INFORMATION
  Report Type: Spontaneous
  Country: NZ (occurrence: NZ)
  Receive Date: 20130320
  Receipt Date: 20130417
  Transmission Date: 20140414
  Serious: Yes (Other)
  Sender: FDA-Public Use
  Company Number: PHHY2013NZ025548

PATIENT
  Sex: Female

DRUGS (5)
  1. GLIVEC [Suspect]
     Indication: CHRONIC MYELOID LEUKAEMIA
     Dosage: 400 MG, QD
     Route: 048
     Dates: start: 20110101
  2. CODEINE [Concomitant]
     Dosage: 30 MG-60MG QD
     Route: 048
  3. DICLOFENAC [Concomitant]
     Dosage: 75 MG, QD
     Route: 048
  4. ASPIRIN [Concomitant]
     Dosage: 100 MG, DAILY
     Route: 048
  5. INHIBACE PLUS [Concomitant]
     Dosage: UNK UKN, DAILY
     Route: 048

REACTIONS (3)
  - Heart rate irregular [Not Recovered/Not Resolved]
  - Vitamin B12 deficiency [Unknown]
  - Iron deficiency [Unknown]
